FAERS Safety Report 23621413 (Version 2)
Quarter: 2024Q2

REPORT INFORMATION
  Report Type: Spontaneous
  Country: US (occurrence: US)
  Receive Date: 20240312
  Receipt Date: 20240612
  Transmission Date: 20240716
  Serious: No
  Sender: FDA-Public Use
  Company Number: US-AMNEAL PHARMACEUTICALS-2023-AMRX-04620

PATIENT
  Sex: Female
  Weight: 58.957 kg

DRUGS (1)
  1. LISDEXAMFETAMINE DIMESYLATE [Suspect]
     Active Substance: LISDEXAMFETAMINE DIMESYLATE
     Indication: Psychomotor hyperactivity
     Dosage: 1 CAPSULES, 1 /DAY
     Route: 048
     Dates: start: 20231003, end: 202312

REACTIONS (9)
  - Swollen tongue [Recovered/Resolved]
  - Glossodynia [Recovered/Resolved]
  - Tongue discomfort [Recovered/Resolved]
  - Stomatitis [Recovered/Resolved]
  - Glossitis [Recovered/Resolved]
  - Lip disorder [Recovered/Resolved]
  - Lip swelling [Recovered/Resolved]
  - Drug ineffective [Unknown]
  - Product substitution issue [Unknown]
